FAERS Safety Report 4680365-6 (Version None)
Quarter: 2005Q2

REPORT INFORMATION
  Report Type: 
  Country: None (occurrence: None)
  Receive Date: 20050601
  Receipt Date: 20050518
  Transmission Date: 20051028
  Serious: Yes (Other)
  Sender: FDA-Public Use
  Company Number: DSA_26253_2005

PATIENT
  Age: 48 Year
  Sex: Male

DRUGS (2)
  1. ENALAPRIL MALEATE [Suspect]
     Indication: HYPERTENSION
     Dosage: 20 MG Q DAY PO
     Route: 048
     Dates: start: 20040801
  2. CARDIOASPIRIN [Concomitant]

REACTIONS (2)
  - ABDOMINAL PAIN [None]
  - CHOLELITHIASIS [None]
